FAERS Safety Report 10947731 (Version 1)
Quarter: 2015Q1

REPORT INFORMATION
  Report Type: Spontaneous
  Country: JP (occurrence: JP)
  Receive Date: 20150324
  Receipt Date: 20150324
  Transmission Date: 20150721
  Serious: Yes (Death)
  Sender: FDA-Public Use
  Company Number: JP-ROCHE-1554931

PATIENT
  Age: 73 Year
  Sex: Male
  Weight: 63 kg

DRUGS (4)
  1. ROCEPHIN [Concomitant]
     Active Substance: CEFTRIAXONE SODIUM
     Indication: GLOMERULONEPHRITIS RAPIDLY PROGRESSIVE
     Route: 042
     Dates: start: 20141009, end: 20141013
  2. NESP [Concomitant]
     Active Substance: DARBEPOETIN ALFA
     Indication: GLOMERULONEPHRITIS RAPIDLY PROGRESSIVE
     Dosage: SINGLE DOSE ADMINISTRATION
     Route: 042
     Dates: start: 20141009, end: 20141009
  3. SOLU-MEDROL [Concomitant]
     Active Substance: METHYLPREDNISOLONE SODIUM SUCCINATE
     Indication: GLOMERULONEPHRITIS RAPIDLY PROGRESSIVE
     Route: 042
     Dates: start: 20141009, end: 20141011
  4. BONVIVA [Suspect]
     Active Substance: IBANDRONATE SODIUM
     Indication: OSTEOPOROSIS PROPHYLAXIS
     Dosage: SINGLE DOSE ADMINISTRATION
     Route: 042
     Dates: start: 20141009, end: 20141009

REACTIONS (1)
  - Pulmonary haemorrhage [Fatal]

NARRATIVE: CASE EVENT DATE: 20141013
